FAERS Safety Report 13353325 (Version 1)
Quarter: 2017Q1

REPORT INFORMATION
  Report Type: Spontaneous
  Country: US (occurrence: US)
  Receive Date: 20170320
  Receipt Date: 20170320
  Transmission Date: 20170429
  Serious: Yes (Disabling)
  Sender: FDA-Public Use
  Company Number: None

PATIENT
  Age: 59 Year
  Sex: Female
  Weight: 50.85 kg

DRUGS (5)
  1. CVS HEALTH ONE DAILY WOMEN^S FORMULA MULTIVITAMIN/MULTIMINERAL SUPPLEMENT [Suspect]
     Active Substance: MINERALS\VITAMINS
     Indication: VITAMIN SUPPLEMENTATION
     Route: 048
  2. CALCIUM SOFT CHEWS [Concomitant]
  3. D3 SUPPLEMENT [Concomitant]
  4. ALLERGY RELIEF (FEXOFENADINE HYDROCHLORIDE) [Suspect]
     Active Substance: FEXOFENADINE HYDROCHLORIDE
     Indication: HYPERSENSITIVITY
     Route: 048
     Dates: start: 20170304, end: 20170311
  5. NATURE MADE BIOTIN SUPPLEMENT [Concomitant]

REACTIONS (1)
  - Product label issue [None]

NARRATIVE: CASE EVENT DATE: 20170309
